FAERS Safety Report 9291721 (Version 1)
Quarter: 2013Q2

REPORT INFORMATION
  Report Type: Spontaneous
  Country: DE (occurrence: DE)
  Receive Date: 20130516
  Receipt Date: 20130516
  Transmission Date: 20140414
  Serious: Yes (Other)
  Sender: FDA-Public Use
  Company Number: DE-ROCHE-1222968

PATIENT
  Age: 61 Year
  Sex: Female

DRUGS (12)
  1. MYCOPHENOLATE MOFETIL [Suspect]
     Indication: PROPHYLAXIS AGAINST GRAFT VERSUS HOST DISEASE
     Route: 065
  2. GANCICLOVIR [Suspect]
     Indication: CYTOMEGALOVIRUS INFECTION
     Route: 065
  3. ATG-FRESENIUS [Suspect]
     Indication: PROPHYLAXIS AGAINST GRAFT VERSUS HOST DISEASE
     Route: 065
  4. ATG-FRESENIUS [Suspect]
     Indication: PROPHYLAXIS AGAINST GRAFT VERSUS HOST DISEASE
  5. TACROLIMUS [Suspect]
     Indication: PROPHYLAXIS AGAINST GRAFT VERSUS HOST DISEASE
     Route: 065
  6. TACROLIMUS [Suspect]
     Indication: PROPHYLAXIS AGAINST GRAFT VERSUS HOST DISEASE
  7. PREDNISOLONE [Suspect]
     Indication: STEM CELL TRANSPLANT
     Route: 065
  8. PREDNISOLONE [Suspect]
     Route: 065
  9. FOSCARNET [Suspect]
     Indication: CYTOMEGALOVIRUS INFECTION
     Route: 065
  10. FLUDARABINE [Concomitant]
     Indication: MYELODYSPLASTIC SYNDROME
  11. TREOSULFAN [Concomitant]
     Indication: MYELODYSPLASTIC SYNDROME
  12. SIROLIMUS [Concomitant]
     Indication: STEM CELL TRANSPLANT

REACTIONS (5)
  - Pneumonia cytomegaloviral [Recovered/Resolved]
  - Neutropenia [Unknown]
  - Renal impairment [Unknown]
  - Cytomegalovirus colitis [Unknown]
  - Drug resistance [Unknown]
